FAERS Safety Report 8319684-0 (Version None)
Quarter: 2012Q2

REPORT INFORMATION
  Report Type: 
  Country: None (occurrence: None)
  Receive Date: 20120427
  Receipt Date: 20120418
  Transmission Date: 20120825
  Serious: Yes (Hospitalization)
  Sender: FDA-Public Use
  Company Number: JP-NAPPMUNDI-MAG-2012-0002146

PATIENT
  Age: 81 Year
  Sex: Male

DRUGS (3)
  1. BUPRENORPHINE [Suspect]
     Indication: OSTEOARTHRITIS
     Dosage: UNK
     Route: 062
     Dates: start: 20120404, end: 20120418
  2. EXELON [Concomitant]
     Route: 061
  3. LANSOPRAZOLE [Concomitant]
     Route: 048

REACTIONS (1)
  - CREATININE RENAL CLEARANCE INCREASED [None]
